FAERS Safety Report 8628636 (Version 2)
Quarter: 2012Q4

REPORT INFORMATION
  Report Type: Report from Study
  Country: CA (occurrence: CA)
  Receive Date: 20120621
  Receipt Date: 20121114
  Transmission Date: 20130627
  Serious: Yes (Hospitalization)
  Sender: FDA-Public Use
  Company Number: CA-ROCHE-1078891

PATIENT
  Age: 33 Year
  Sex: Female
  Weight: 83.99 kg

DRUGS (7)
  1. RITUXIMAB [Suspect]
     Indication: RHEUMATOID ARTHRITIS
     Dosage: frequency day 1 and day 15
     Route: 042
     Dates: start: 20100617
  2. METHOTREXATE [Concomitant]
     Route: 065
  3. PREDNISONE [Concomitant]
     Route: 065
  4. MORPHINE [Concomitant]
     Route: 065
  5. VITAMIN D [Concomitant]
     Route: 065
  6. CALCIUM [Concomitant]
     Route: 065
  7. IRON [Concomitant]
     Route: 065

REACTIONS (3)
  - Abdominal wall disorder [Unknown]
  - Cellulitis [Unknown]
  - Ulcer [Unknown]
